FAERS Safety Report 8610466-9 (Version None)
Quarter: 2012Q3

REPORT INFORMATION
  Report Type: 
  Country: None (occurrence: None)
  Receive Date: 20120822
  Receipt Date: 20120816
  Transmission Date: 20120928
  Serious: No
  Sender: FDA-Public Use
  Company Number: US-PFIZER INC-2012203483

PATIENT
  Age: 70 Year
  Sex: Female
  Weight: 77.1 kg

DRUGS (19)
  1. FEXOFENADINE [Concomitant]
     Indication: HYPERSENSITIVITY
     Dosage: UNK
  2. LOPERAMIDE [Concomitant]
     Indication: DIARRHOEA
     Dosage: UNK
  3. MAXZIDE [Concomitant]
     Dosage: UNK
  4. POTASSIUM [Concomitant]
     Indication: BLOOD POTASSIUM DECREASED
     Dosage: 20 MEQ, 2X/DAY
  5. CITALOPRAM [Concomitant]
     Indication: DEPRESSION
     Dosage: 10 MG, UNK
  6. CRESTOR [Concomitant]
     Indication: HYPERLIPIDAEMIA
     Dosage: 20 MG, UNK
  7. VITAMIN D [Concomitant]
     Dosage: UNK
  8. METOPROLOL TARTRATE [Concomitant]
     Indication: HYPERTENSION
     Dosage: 25 MG, UNK
  9. SYNTHROID [Concomitant]
     Indication: HYPOTHYROIDISM
     Dosage: 0.075 MG, UNK
  10. COUMADIN [Concomitant]
     Dosage: 5 MG, UNK
  11. LOVAZA [Concomitant]
     Dosage: UNK
  12. NASONEX [Concomitant]
     Indication: HYPERSENSITIVITY
     Dosage: UNK
  13. FOLIC ACID [Concomitant]
     Dosage: 400 UG, 1X/DAY
  14. LOSARTAN [Concomitant]
     Dosage: UNK
  15. ASCORBIC ACID [Concomitant]
     Dosage: UNK
  16. CO-Q-10 [Concomitant]
     Dosage: 100 MG, UNK
  17. AMLODIPINE BESYLATE [Suspect]
     Dosage: 5 MG, UNK
  18. AZELASTINE [Concomitant]
     Indication: HYPERSENSITIVITY
     Dosage: UNK
  19. HYDROCHLOROTHIAZIDE [Concomitant]
     Dosage: UNK

REACTIONS (1)
  - JOINT SWELLING [None]
